FAERS Safety Report 4712266-9 (Version None)
Quarter: 2005Q3

REPORT INFORMATION
  Report Type: 
  Country: None (occurrence: None)
  Receive Date: 20050712
  Receipt Date: 20050701
  Transmission Date: 20060218
  Serious: Yes (Other)
  Sender: FDA-Public Use
  Company Number: US-GLAXOSMITHKLINE-B0387125A

PATIENT
  Age: 46 Year
  Sex: Male

DRUGS (3)
  1. AUGMENTIN '125' [Suspect]
     Indication: INFECTION
     Route: 048
     Dates: start: 20050615
  2. VOLTAREN [Suspect]
     Indication: PAIN
     Dates: start: 20050615, end: 20050617
  3. AERIUS [Concomitant]
     Route: 048
     Dates: start: 20050615, end: 20050617

REACTIONS (3)
  - COUGH [None]
  - PAIN [None]
  - TRANSAMINASES INCREASED [None]
